FAERS Safety Report 11285245 (Version 2)
Quarter: 2015Q4

REPORT INFORMATION
  Report Type: Spontaneous
  Country: US (occurrence: US)
  Receive Date: 20150720
  Receipt Date: 20151013
  Transmission Date: 20160304
  Serious: Yes (Death, Hospitalization, Other)
  Sender: FDA-Public Use
  Company Number: PHEH2015US013807

PATIENT
  Age: 49 Year
  Sex: Female
  Weight: 71.4 kg

DRUGS (19)
  1. ALTACE [Concomitant]
     Active Substance: RAMIPRIL
     Indication: PRODUCT USED FOR UNKNOWN INDICATION
     Dosage: 2.5 MG, QD, EVERY EVENING
     Route: 048
     Dates: start: 20150115
  2. ALDACTONE [Concomitant]
     Active Substance: SPIRONOLACTONE
     Indication: PRODUCT USED FOR UNKNOWN INDICATION
     Dosage: 1 DF, QD (25 MG TOTAL)
     Route: 048
     Dates: start: 20140902
  3. VITAMIIN C [Concomitant]
     Active Substance: ASCORBIC ACID
     Indication: PRODUCT USED FOR UNKNOWN INDICATION
     Dosage: 1000 MG, QD
     Route: 048
  4. LEVOTHYROXIN [Concomitant]
     Active Substance: LEVOTHYROXINE
     Indication: HYPOTHYROIDISM
     Dosage: 50 UG, UNK
     Route: 065
  5. ZOMETA [Suspect]
     Active Substance: ZOLEDRONIC ACID
     Indication: METASTASES TO BONE
     Dosage: 4 MG, QMO (ONCE MONTHLY)
     Route: 042
     Dates: start: 20140825, end: 20150112
  6. AFINITOR [Suspect]
     Active Substance: EVEROLIMUS
     Indication: BREAST CANCER
     Dosage: 10 MG, QD (ONCE DAILY)
     Route: 048
     Dates: start: 20140825, end: 20150112
  7. XARELTO [Concomitant]
     Active Substance: RIVAROXABAN
     Indication: ATRIAL FIBRILLATION
     Dosage: 1 DF, QD
     Route: 048
     Dates: start: 20150112
  8. ARIMIDEX [Suspect]
     Active Substance: ANASTROZOLE
     Indication: PRODUCT USED FOR UNKNOWN INDICATION
     Route: 065
  9. LASIX [Concomitant]
     Active Substance: FUROSEMIDE
     Indication: SWELLING
     Dosage: 1 DF, BID
     Route: 048
     Dates: start: 20141205
  10. LASIX [Concomitant]
     Active Substance: FUROSEMIDE
     Indication: DYSPNOEA
  11. XELODA [Concomitant]
     Active Substance: CAPECITABINE
     Indication: PRODUCT USED FOR UNKNOWN INDICATION
     Route: 065
  12. AROMASIN [Suspect]
     Active Substance: EXEMESTANE
     Indication: BREAST CANCER
     Dosage: 25 MG, QD
     Route: 048
     Dates: start: 20140825, end: 20150112
  13. LOPRESSOR [Concomitant]
     Active Substance: METOPROLOL TARTRATE
     Indication: PRODUCT USED FOR UNKNOWN INDICATION
     Dosage: 0.5 MG, BID (12.5 MG TOTAL)
     Route: 048
     Dates: start: 20150115
  14. ULTRAM [Concomitant]
     Active Substance: TRAMADOL HYDROCHLORIDE
     Indication: PAIN
     Dosage: 1 DF (50 MG TOTAL), PRN (EVERY 6 HOURRS AS NEEDED)
     Route: 048
     Dates: start: 20150115
  15. COREG [Concomitant]
     Active Substance: CARVEDILOL
     Indication: PRODUCT USED FOR UNKNOWN INDICATION
     Dosage: 6.25 MG, BID
     Route: 048
  16. GLYCOLAX [Concomitant]
     Active Substance: POLYETHYLENE GLYCOL 3350
     Indication: PRODUCT USED FOR UNKNOWN INDICATION
     Dosage: 17 G, QD (ONCE DAILY)
     Route: 048
     Dates: start: 20150128
  17. SYNTHROID [Concomitant]
     Active Substance: LEVOTHYROXINE SODIUM
     Indication: PRODUCT USED FOR UNKNOWN INDICATION
     Dosage: 1 DF, (50 MCG) BEFORE BREAKFAST
     Route: 048
     Dates: start: 20141124
  18. LANOXIN [Concomitant]
     Active Substance: DIGOXIN
     Indication: PRODUCT USED FOR UNKNOWN INDICATION
     Dosage: 1 DF, QD (0.125 MG)
     Route: 048
     Dates: start: 20141205
  19. PACERONE [Concomitant]
     Active Substance: AMIODARONE HYDROCHLORIDE
     Indication: ATRIAL FIBRILLATION
     Dosage: 0.5 DF, BID
     Route: 048
     Dates: start: 20140902

REACTIONS (47)
  - Anaemia [Recovered/Resolved with Sequelae]
  - Sputum discoloured [Unknown]
  - Urinary tract infection [Unknown]
  - Injection site erythema [Unknown]
  - Cardiac failure congestive [Recovering/Resolving]
  - Haemoglobin decreased [Recovered/Resolved with Sequelae]
  - Hypophagia [Unknown]
  - Ischaemia [Unknown]
  - Hypovolaemia [Recovering/Resolving]
  - Left ventricular dysfunction [Unknown]
  - Dilatation ventricular [Unknown]
  - Body temperature increased [Unknown]
  - Chest discomfort [Recovered/Resolved with Sequelae]
  - Pulmonary hypertension [Unknown]
  - Injection site discharge [Unknown]
  - Left atrial dilatation [Unknown]
  - Nausea [Unknown]
  - Blood pressure decreased [Unknown]
  - Death [Fatal]
  - Haematocrit decreased [Recovered/Resolved with Sequelae]
  - Pallor [Unknown]
  - Pericardial effusion [Unknown]
  - Atrial fibrillation [Unknown]
  - Headache [Unknown]
  - Asthenia [Recovered/Resolved with Sequelae]
  - Dyspnoea [Recovered/Resolved with Sequelae]
  - Hyponatraemia [Unknown]
  - Visual impairment [Unknown]
  - Sinus tachycardia [Unknown]
  - Pulmonary valve incompetence [Unknown]
  - Dyspnoea exertional [Recovered/Resolved with Sequelae]
  - Dizziness [Recovered/Resolved with Sequelae]
  - Pulmonary oedema [Unknown]
  - Mitral valve incompetence [Unknown]
  - Ascites [Unknown]
  - Injection site pain [Unknown]
  - Pleural effusion [Unknown]
  - Productive cough [Unknown]
  - Pain [Unknown]
  - Tricuspid valve incompetence [Unknown]
  - Hypertrophy [Unknown]
  - Urticaria [Unknown]
  - Injection site swelling [Unknown]
  - Fatigue [Recovered/Resolved with Sequelae]
  - Tachycardia [Unknown]
  - Aortic valve incompetence [Unknown]
  - Vomiting [Unknown]

NARRATIVE: CASE EVENT DATE: 20150210
